FAERS Safety Report 24550112 (Version 1)
Quarter: 2024Q4

REPORT INFORMATION
  Report Type: Report from Study
  Country: US (occurrence: US)
  Receive Date: 20241025
  Receipt Date: 20241025
  Transmission Date: 20250115
  Serious: Yes (Other)
  Sender: JOHNSON AND JOHNSON
  Company Number: US-JNJFOC-20241059103

PATIENT

DRUGS (4)
  1. REMICADE [Suspect]
     Active Substance: INFLIXIMAB
     Indication: Crohn^s disease
     Dosage: ADMINISTERED INTRAVENOUSLY AT WEEKS 0, 2, AND 6
     Route: 041
  2. REMICADE [Suspect]
     Active Substance: INFLIXIMAB
     Route: 041
  3. MERCAPTOPURINE [Concomitant]
     Active Substance: MERCAPTOPURINE
  4. AZATHIOPRINE [Concomitant]
     Active Substance: AZATHIOPRINE

REACTIONS (16)
  - Anal abscess [Unknown]
  - Pneumonia [Recovered/Resolved]
  - Furuncle [Unknown]
  - Chest pain [Unknown]
  - Ureteric obstruction [Unknown]
  - Intestinal obstruction [Unknown]
  - Double stranded DNA antibody [Unknown]
  - Headache [Unknown]
  - Upper respiratory tract infection [Unknown]
  - Fatigue [Unknown]
  - Infusion related reaction [Unknown]
  - Body temperature increased [Unknown]
  - Flushing [Unknown]
  - Chest pain [Unknown]
  - Dizziness [Unknown]
  - Drug specific antibody present [Unknown]
